FAERS Safety Report 10313274 (Version 1)
Quarter: 2014Q3

REPORT INFORMATION
  Report Type: Spontaneous
  Country: SI (occurrence: SI)
  Receive Date: 20140718
  Receipt Date: 20140718
  Transmission Date: 20150326
  Serious: Yes (Other)
  Sender: FDA-Public Use
  Company Number: SI-ROXANE LABORATORIES, INC.-2014-RO-01070RO

PATIENT
  Age: 62 Year
  Sex: Male

DRUGS (1)
  1. OXCARBAZEPINE. [Suspect]
     Active Substance: OXCARBAZEPINE
     Indication: IDIOPATHIC GENERALISED EPILEPSY
     Dosage: 600 MG
     Route: 065

REACTIONS (1)
  - Drug eruption [Recovered/Resolved]
